FAERS Safety Report 7733221 (Version 4)
Quarter: 2013Q2

REPORT INFORMATION
  Report Type: Spontaneous
  Country: US (occurrence: US)
  Receive Date: 20101223
  Receipt Date: 20130613
  Transmission Date: 20140414
  Serious: Yes (Hospitalization, Other)
  Sender: FDA-Public Use
  Company Number: US-JNJFOC-20100807807

PATIENT
  Sex: Male

DRUGS (2)
  1. LEVAQUIN [Suspect]
     Indication: OROPHARYNGEAL PAIN
     Route: 048
     Dates: start: 200512, end: 20060131
  2. LEVAQUIN [Suspect]
     Indication: SINUSITIS
     Route: 048
     Dates: start: 200512, end: 20060131

REACTIONS (8)
  - Rotator cuff syndrome [Recovering/Resolving]
  - Tendon rupture [Unknown]
  - Tendon rupture [Unknown]
  - Joint injury [Unknown]
  - Neuropathy peripheral [Recovering/Resolving]
  - Rotator cuff syndrome [Recovering/Resolving]
  - Ligament sprain [Unknown]
  - Ligament sprain [Unknown]
